FAERS Safety Report 6702759-7 (Version None)
Quarter: 2010Q2

REPORT INFORMATION
  Report Type: 
  Country: None (occurrence: None)
  Receive Date: 20100429
  Receipt Date: 20100428
  Transmission Date: 20101027
  Serious: Yes (Hospitalization, Other)
  Sender: FDA-Public Use
  Company Number: PHHO2010BR05427

PATIENT
  Sex: Male
  Weight: 59.65 kg

DRUGS (2)
  1. STI571/CGP57148B T35717+TAB [Suspect]
     Dosage: UNK
     Route: 048
  2. STI571/CGP57148B T35717+TAB [Suspect]
     Dosage: UNK

REACTIONS (5)
  - ARRHYTHMIA [None]
  - ATRIAL FIBRILLATION [None]
  - DIARRHOEA [None]
  - DIZZINESS [None]
  - ELECTROCARDIOGRAM QT PROLONGED [None]
